FAERS Safety Report 9486835 (Version 3)
Quarter: 2014Q1

REPORT INFORMATION
  Report Type: Report from Study
  Country: CA (occurrence: CA)
  Receive Date: 20130829
  Receipt Date: 20140317
  Transmission Date: 20141002
  Serious: Yes (Life-Threatening, Hospitalization)
  Sender: FDA-Public Use
  Company Number: CA-TEVA-428999USA

PATIENT
  Age: 51 Year
  Sex: Male
  Weight: 99.6 kg

DRUGS (8)
  1. BENDAMUSTINE [Suspect]
     Indication: CHRONIC LYMPHOCYTIC LEUKAEMIA
     Route: 042
     Dates: start: 20130619
  2. BENDAMUSTINE [Suspect]
     Route: 042
     Dates: start: 20130719
  3. RITUXIMAB [Suspect]
     Indication: CHRONIC LYMPHOCYTIC LEUKAEMIA
     Route: 042
     Dates: start: 20130618
  4. RITUXIMAB [Suspect]
     Route: 042
     Dates: start: 20130718
  5. IBRUTINIB/ PLACEBO [Suspect]
     Indication: CHRONIC LYMPHOCYTIC LEUKAEMIA
     Dosage: 420 MILLIGRAM DAILY; UID/QD
     Route: 048
     Dates: start: 20130619
  6. IBRUTINIB/ PLACEBO [Suspect]
     Dosage: 420 MILLIGRAM DAILY; UID/QD
     Route: 048
     Dates: start: 20130813
  7. PREDNISONE [Concomitant]
     Indication: PRODUCT USED FOR UNKNOWN INDICATION
     Dosage: 100 MILLIGRAM DAILY;
  8. CLAVULIN [Concomitant]
     Indication: PRODUCT USED FOR UNKNOWN INDICATION
     Dosage: 875 MILLIGRAM DAILY;
     Route: 048

REACTIONS (1)
  - Autoimmune haemolytic anaemia [Recovered/Resolved]
